FAERS Safety Report 14911912 (Version 1)
Quarter: 2018Q2

REPORT INFORMATION
  Report Type: Spontaneous
  Country: US (occurrence: US)
  Receive Date: 20180518
  Receipt Date: 20180518
  Transmission Date: 20180711
  Serious: Yes (Death)
  Sender: FDA-Public Use
  Company Number: US-BEH-2018090699

PATIENT
  Age: 10 Year
  Sex: Male
  Weight: 30.2 kg

DRUGS (17)
  1. DIASTAT ACUDIAL [Concomitant]
     Active Substance: DIAZEPAM
  2. CALCIUM [Concomitant]
     Active Substance: CALCIUM
  3. NYSTATIN. [Concomitant]
     Active Substance: NYSTATIN
  4. FLONASE [Concomitant]
     Active Substance: FLUTICASONE PROPIONATE
  5. ONFI [Concomitant]
     Active Substance: CLOBAZAM
  6. HIZENTRA [Suspect]
     Active Substance: HUMAN IMMUNOGLOBULIN G
     Indication: IMMUNODEFICIENCY
     Dosage: UNK
     Route: 058
  7. FLOVENT [Concomitant]
     Active Substance: FLUTICASONE PROPIONATE
  8. SABRIL [Concomitant]
     Active Substance: VIGABATRIN
  9. PROAIR HFA [Concomitant]
     Active Substance: ALBUTEROL SULFATE
  10. ZANTAC [Concomitant]
     Active Substance: RANITIDINE HYDROCHLORIDE
  11. BANZEL [Concomitant]
     Active Substance: RUFINAMIDE
  12. CLONAZEPAM. [Concomitant]
     Active Substance: CLONAZEPAM
  13. HIZENTRA [Suspect]
     Active Substance: HUMAN IMMUNOGLOBULIN G
     Dosage: 4 G, QW
     Route: 058
     Dates: start: 20150806
  14. MIRALAX [Concomitant]
     Active Substance: POLYETHYLENE GLYCOL 3350
  15. KEPPRA [Concomitant]
     Active Substance: LEVETIRACETAM
  16. GLYCOPYRROLATE                     /00196201/ [Concomitant]
     Active Substance: GLYCOPYRRONIUM
  17. ZARONTIN [Concomitant]
     Active Substance: ETHOSUXIMIDE

REACTIONS (1)
  - Death [Fatal]

NARRATIVE: CASE EVENT DATE: 20180513
